FAERS Safety Report 8369075-1 (Version None)
Quarter: 2012Q2

REPORT INFORMATION
  Report Type: 
  Country: None (occurrence: None)
  Receive Date: 20120518
  Receipt Date: 20120515
  Transmission Date: 20120825
  Serious: Yes (Hospitalization, Other)
  Sender: FDA-Public Use
  Company Number: US-BAYER-2011-090626

PATIENT
  Age: 37 Year
  Sex: Female
  Weight: 88.435 kg

DRUGS (31)
  1. YAZ [Suspect]
  2. FLONASE [Concomitant]
     Dosage: 0.05 PUFF(S), QD
     Route: 045
     Dates: start: 20050823, end: 20100204
  3. ACIDOPHILUS [Concomitant]
     Dosage: UNK
     Dates: start: 20090731
  4. MULTI-VITAMIN [Concomitant]
     Dosage: UNK
     Dates: start: 20090731
  5. MONTELUKAST [Concomitant]
  6. CLARITIN [Concomitant]
  7. SINGULAIR [Concomitant]
     Indication: MULTIPLE ALLERGIES
     Dosage: UNK
     Dates: start: 20060101, end: 20110101
  8. SINGULAIR [Concomitant]
     Dosage: UNK
  9. LORATADINE [Concomitant]
  10. YAZ [Suspect]
     Indication: PREMENSTRUAL SYNDROME
     Dosage: 1 TABLET PER DAY
     Dates: start: 20090701, end: 20090801
  11. ECHINACEA [Concomitant]
     Dosage: UNK
     Dates: start: 20090731
  12. TYLENOL (CAPLET) [Concomitant]
     Dosage: 325 MG, PRN
     Route: 048
     Dates: start: 20040423, end: 20100204
  13. PAMPRIN TAB [Concomitant]
     Dosage: UNK UNK, PRN
     Route: 048
     Dates: start: 20051025, end: 20100204
  14. AMITRIPTYLINE HCL [Concomitant]
  15. ATROVENT [Concomitant]
  16. EFFEXOR [Concomitant]
     Indication: DEPRESSION
     Dosage: UNK
     Dates: start: 20050101
  17. DURADRIN [Concomitant]
     Dosage: UNK
     Dates: start: 20090101
  18. PROMETHAZINE [Concomitant]
  19. ELAVIL [Concomitant]
     Indication: DEPRESSION
     Dosage: UNK
     Dates: start: 20060101, end: 20110101
  20. MAXALT [Concomitant]
     Dosage: UNK
     Dates: start: 20090101
  21. KEFLEX [Concomitant]
  22. ASCORBIC ACID [Concomitant]
     Dosage: UNK
     Dates: start: 20090731
  23. TYLENOL ALLERGY SINUS [Concomitant]
     Dosage: UNK
     Dates: start: 20090731
  24. SIMETHICONE [Concomitant]
     Dosage: UNK
     Route: 048
     Dates: start: 20090731
  25. YAZ [Suspect]
     Indication: MIGRAINE
  26. CLARITIN [Concomitant]
     Indication: MULTIPLE ALLERGIES
     Dosage: UNK
     Dates: start: 20060101, end: 20110101
  27. MIDRIN [Concomitant]
     Dosage: UNK
     Dates: start: 20090101
  28. ALBUTEROL [Concomitant]
     Dosage: 2 PUFF(S), PRN
     Route: 045
     Dates: start: 20040222, end: 20090810
  29. ZOMIG [Concomitant]
     Indication: HEADACHE
     Dosage: 1 DF, UNK
     Dates: start: 20050310, end: 20100204
  30. DARVOCET-N 50 [Concomitant]
     Dosage: 1 DF, QID PRN
     Route: 048
     Dates: start: 20090410, end: 20100204
  31. FLUTICASONE FUROATE [Concomitant]

REACTIONS (12)
  - BIPOLAR DISORDER [None]
  - PULMONARY INFARCTION [None]
  - CHOLELITHIASIS [None]
  - CARDIAC DISORDER [None]
  - ANXIETY [None]
  - PSYCHOLOGICAL TRAUMA [None]
  - DEPRESSION [None]
  - MOOD SWINGS [None]
  - PULMONARY EMBOLISM [None]
  - PAIN [None]
  - EMOTIONAL DISTRESS [None]
  - CHOLECYSTITIS CHRONIC [None]
